FAERS Safety Report 7918897-7 (Version None)
Quarter: 2011Q4

REPORT INFORMATION
  Report Type: 
  Country: None (occurrence: None)
  Receive Date: 20111116
  Receipt Date: 20111108
  Transmission Date: 20120403
  Serious: Yes (Death, Other)
  Sender: FDA-Public Use
  Company Number: PHEH2009US07474

PATIENT
  Sex: Female

DRUGS (7)
  1. TAMOXIFEN CITRATE [Concomitant]
  2. XANAX [Concomitant]
  3. ZOMETA [Suspect]
  4. HERCEPTIN [Concomitant]
  5. CARBOPLATIN [Concomitant]
  6. NAVELBINE [Concomitant]
  7. TAXOL [Concomitant]

REACTIONS (8)
  - GENERAL PHYSICAL HEALTH DETERIORATION [None]
  - DEATH [None]
  - DISABILITY [None]
  - HAEMOPTYSIS [None]
  - OSTEONECROSIS OF JAW [None]
  - ANXIETY [None]
  - ANHEDONIA [None]
  - PAIN [None]
